FAERS Safety Report 14577154 (Version 1)
Quarter: 2018Q1

REPORT INFORMATION
  Report Type: Spontaneous
  Country: US (occurrence: US)
  Receive Date: 20180226
  Receipt Date: 20180226
  Transmission Date: 20180509
  Serious: Yes (Disabling, Other)
  Sender: FDA-Public Use
  Company Number: None

PATIENT
  Sex: Female
  Weight: 78.75 kg

DRUGS (1)
  1. IMITREX [Suspect]
     Active Substance: SUMATRIPTAN SUCCINATE
     Indication: MIGRAINE
     Route: 030
     Dates: start: 19980813, end: 19980814

REACTIONS (5)
  - Cerebrovascular accident [None]
  - Carotid artery occlusion [None]
  - Loss of consciousness [None]
  - Carotid artery dissection [None]
  - Subarachnoid haemorrhage [None]

NARRATIVE: CASE EVENT DATE: 19980815
